FAERS Safety Report 11225575 (Version 1)
Quarter: 2015Q2

REPORT INFORMATION
  Report Type: Spontaneous
  Country: NL (occurrence: NL)
  Receive Date: 20150629
  Receipt Date: 20150629
  Transmission Date: 20150821
  Serious: Yes (Other)
  Sender: FDA-Public Use
  Company Number: NL-GLAXOSMITHKLINE-NL2015GSK091891

PATIENT
  Age: 25 Year
  Sex: Male
  Weight: 83 kg

DRUGS (1)
  1. WELLBUTRIN XL [Suspect]
     Active Substance: BUPROPION HYDROCHLORIDE
     Indication: ATTENTION DEFICIT/HYPERACTIVITY DISORDER
     Dosage: 150 MG, QD
     Dates: start: 20150616, end: 20150617

REACTIONS (5)
  - Restlessness [Recovered/Resolved]
  - Crying [Recovered/Resolved]
  - Suicidal ideation [Recovered/Resolved]
  - Off label use [Not Recovered/Not Resolved]
  - Aggression [Recovered/Resolved]

NARRATIVE: CASE EVENT DATE: 20150616
